FAERS Safety Report 25539360 (Version 1)
Quarter: 2025Q3

REPORT INFORMATION
  Report Type: Spontaneous
  Country: US (occurrence: None)
  Receive Date: 20250708
  Receipt Date: 20250708
  Transmission Date: 20251021
  Serious: Yes (Other)
  Sender: FDA-CTU
  Company Number: None

PATIENT
  Age: 89 Year
  Sex: Female
  Weight: 52.62 kg

DRUGS (8)
  1. CILOSTAZOL [Suspect]
     Active Substance: CILOSTAZOL
     Indication: Drug therapy
     Dosage: FREQUENCY : TWICE A DAY;?
     Route: 048
     Dates: start: 20250420, end: 20250601
  2. MULTAQ [Concomitant]
     Active Substance: DRONEDARONE
  3. AMLODIPINE [Concomitant]
     Active Substance: AMLODIPINE BESYLATE
  4. ATORVASTATIN [Concomitant]
     Active Substance: ATORVASTATIN
  5. TERMAZEPAM [Concomitant]
  6. TRAMADOL [Concomitant]
     Active Substance: TRAMADOL
  7. BREZTRI [Concomitant]
     Active Substance: BUDESONIDE\FORMOTEROL\GLYCOPYRROLATE
  8. XDEMVY [Suspect]
     Active Substance: LOTILANER

REACTIONS (7)
  - Skin burning sensation [None]
  - Dry skin [None]
  - Paraesthesia [None]
  - Pain [None]
  - Skin exfoliation [None]
  - Skin swelling [None]
  - Skin discolouration [None]

NARRATIVE: CASE EVENT DATE: 20250601
